FAERS Safety Report 15680068 (Version 14)
Quarter: 2022Q3

REPORT INFORMATION
  Report Type: Spontaneous
  Country: CA (occurrence: None)
  Receive Date: 20181203
  Receipt Date: 20220712
  Transmission Date: 20221026
  Serious: Yes (Other)
  Sender: FDA-Public Use
  Company Number: CA-ORION CORPORATION ORION PHARMA-TREX2018-3490

PATIENT
  Age: 72 Year
  Sex: Female

DRUGS (67)
  1. METHOTREXATE [Interacting]
     Active Substance: METHOTREXATE
     Indication: Rheumatoid arthritis
     Route: 065
  2. METHOTREXATE [Interacting]
     Active Substance: METHOTREXATE
     Route: 065
  3. METHOTREXATE [Interacting]
     Active Substance: METHOTREXATE
     Route: 058
  4. METHOTREXATE [Interacting]
     Active Substance: METHOTREXATE
     Route: 058
  5. METHOTREXATE [Interacting]
     Active Substance: METHOTREXATE
     Route: 058
     Dates: start: 200105, end: 201302
  6. METHOTREXATE [Interacting]
     Active Substance: METHOTREXATE
     Route: 058
     Dates: start: 200105, end: 200302
  7. METHOTREXATE [Interacting]
     Active Substance: METHOTREXATE
     Route: 058
     Dates: start: 200302, end: 200310
  8. METHOTREXATE [Interacting]
     Active Substance: METHOTREXATE
     Route: 058
     Dates: start: 200311, end: 200312
  9. METHOTREXATE [Interacting]
     Active Substance: METHOTREXATE
     Route: 058
  10. METHOTREXATE [Interacting]
     Active Substance: METHOTREXATE
     Route: 058
  11. METHOTREXATE [Interacting]
     Active Substance: METHOTREXATE
     Route: 065
  12. METHOTREXATE [Interacting]
     Active Substance: METHOTREXATE
     Route: 065
  13. METHOTREXATE [Interacting]
     Active Substance: METHOTREXATE
     Dosage: DOSE: 7.5 (UNITS UNKNOWN)
     Route: 058
  14. METHOTREXATE [Interacting]
     Active Substance: METHOTREXATE
     Route: 058
  15. METHOTREXATE [Interacting]
     Active Substance: METHOTREXATE
     Route: 058
  16. ENBREL [Interacting]
     Active Substance: ETANERCEPT
     Indication: Rheumatoid arthritis
     Route: 058
     Dates: start: 200612, end: 201302
  17. ENBREL [Interacting]
     Active Substance: ETANERCEPT
     Route: 065
  18. ENBREL [Interacting]
     Active Substance: ETANERCEPT
     Route: 065
  19. CELEBREX [Interacting]
     Active Substance: CELECOXIB
     Indication: Rheumatoid arthritis
     Route: 065
  20. CELEBREX [Interacting]
     Active Substance: CELECOXIB
     Indication: Arthritis
     Route: 065
  21. SULFASALAZINE [Interacting]
     Active Substance: SULFASALAZINE
     Indication: Rheumatoid arthritis
     Route: 065
     Dates: start: 200105, end: 200302
  22. SULFASALAZINE [Interacting]
     Active Substance: SULFASALAZINE
     Route: 065
  23. SULFASALAZINE [Interacting]
     Active Substance: SULFASALAZINE
     Route: 065
  24. SULFASALAZINE [Interacting]
     Active Substance: SULFASALAZINE
     Route: 065
  25. SULFASALAZINE [Interacting]
     Active Substance: SULFASALAZINE
     Route: 065
  26. ARAVA [Interacting]
     Active Substance: LEFLUNOMIDE
     Indication: Rheumatoid arthritis
     Route: 065
     Dates: start: 200902
  27. ARAVA [Interacting]
     Active Substance: LEFLUNOMIDE
     Indication: Arthritis
     Route: 065
  28. ARAVA [Interacting]
     Active Substance: LEFLUNOMIDE
     Route: 065
  29. ARAVA [Interacting]
     Active Substance: LEFLUNOMIDE
     Route: 065
  30. ARAVA [Interacting]
     Active Substance: LEFLUNOMIDE
     Route: 065
  31. PREDNISONE [Interacting]
     Active Substance: PREDNISONE
     Indication: Arthritis
     Route: 065
     Dates: end: 201412
  32. PREDNISONE [Interacting]
     Active Substance: PREDNISONE
     Indication: Rheumatoid arthritis
     Route: 065
  33. ORENCIA [Interacting]
     Active Substance: ABATACEPT
     Indication: Rheumatoid arthritis
     Route: 058
     Dates: start: 201302
  34. ORENCIA [Interacting]
     Active Substance: ABATACEPT
     Route: 065
  35. ORENCIA [Interacting]
     Active Substance: ABATACEPT
     Route: 065
  36. RITUXAN [Interacting]
     Active Substance: RITUXIMAB
     Indication: Rheumatoid arthritis
     Route: 042
  37. PLAQUENIL [Interacting]
     Active Substance: HYDROXYCHLOROQUINE SULFATE
     Indication: Rheumatoid arthritis
     Route: 065
  38. PLAQUENIL [Interacting]
     Active Substance: HYDROXYCHLOROQUINE SULFATE
     Route: 065
  39. PLAQUENIL [Interacting]
     Active Substance: HYDROXYCHLOROQUINE SULFATE
     Route: 065
  40. PLAQUENIL [Interacting]
     Active Substance: HYDROXYCHLOROQUINE SULFATE
     Route: 048
  41. LEFLUNOMIDE [Interacting]
     Active Substance: LEFLUNOMIDE
     Indication: Rheumatoid arthritis
     Route: 048
  42. LEFLUNOMIDE [Interacting]
     Active Substance: LEFLUNOMIDE
     Route: 048
  43. LEFLUNOMIDE [Interacting]
     Active Substance: LEFLUNOMIDE
     Route: 065
  44. LEFLUNOMIDE [Interacting]
     Active Substance: LEFLUNOMIDE
     Route: 048
  45. LEFLUNOMIDE [Interacting]
     Active Substance: LEFLUNOMIDE
     Route: 065
  46. LEFLUNOMIDE [Interacting]
     Active Substance: LEFLUNOMIDE
     Indication: Rheumatoid arthritis
     Route: 048
  47. LEFLUNOMIDE [Interacting]
     Active Substance: LEFLUNOMIDE
     Route: 065
  48. LEFLUNOMIDE [Interacting]
     Active Substance: LEFLUNOMIDE
     Route: 065
  49. LEFLUNOMIDE [Interacting]
     Active Substance: LEFLUNOMIDE
     Route: 065
  50. PREDNISONE [Interacting]
     Active Substance: PREDNISONE
     Indication: Arthritis
     Route: 065
  51. PREDNISONE [Interacting]
     Active Substance: PREDNISONE
     Route: 065
  52. HYDROXYCHLOROQUINE SULFATE [Interacting]
     Active Substance: HYDROXYCHLOROQUINE SULFATE
     Indication: Rheumatoid arthritis
     Route: 065
  53. HYDROXYCHLOROQUINE SULFATE [Interacting]
     Active Substance: HYDROXYCHLOROQUINE SULFATE
     Route: 065
  54. HYDROXYCHLOROQUINE [Interacting]
     Active Substance: HYDROXYCHLOROQUINE
     Indication: Rheumatoid arthritis
     Route: 065
  55. ACTEMRA [Interacting]
     Active Substance: TOCILIZUMAB
     Indication: Product used for unknown indication
     Route: 058
  56. HUMIRA [Interacting]
     Active Substance: ADALIMUMAB
     Indication: Product used for unknown indication
     Route: 065
  57. HUMIRA [Interacting]
     Active Substance: ADALIMUMAB
     Route: 065
  58. TOFACITINIB CITRATE [Interacting]
     Active Substance: TOFACITINIB CITRATE
     Indication: Product used for unknown indication
     Route: 065
  59. RITUXIMAB [Interacting]
     Active Substance: RITUXIMAB
     Indication: Rheumatoid arthritis
     Route: 042
  60. CELECOXIB [Interacting]
     Active Substance: CELECOXIB
     Indication: Rheumatoid arthritis
     Route: 065
  61. CELECOXIB [Interacting]
     Active Substance: CELECOXIB
     Indication: Arthritis
     Route: 065
  62. XELJANZ [Concomitant]
     Active Substance: TOFACITINIB CITRATE
     Route: 048
  63. XELJANZ [Concomitant]
     Active Substance: TOFACITINIB CITRATE
     Route: 048
  64. XELJANZ [Concomitant]
     Active Substance: TOFACITINIB CITRATE
     Route: 048
  65. FOLIC ACID [Concomitant]
     Active Substance: FOLIC ACID
     Route: 065
  66. SIMPONI [Concomitant]
     Active Substance: GOLIMUMAB
     Route: 058
  67. TOFACITINIB [Concomitant]
     Active Substance: TOFACITINIB
     Route: 065

REACTIONS (23)
  - Drug interaction [Not Recovered/Not Resolved]
  - Drug ineffective [Not Recovered/Not Resolved]
  - Contraindicated product administered [Not Recovered/Not Resolved]
  - Neoplasm malignant [Not Recovered/Not Resolved]
  - Rheumatoid arthritis [Not Recovered/Not Resolved]
  - Toxicity to various agents [Not Recovered/Not Resolved]
  - Hepatotoxicity [Unknown]
  - Nausea [Not Recovered/Not Resolved]
  - Thyroid neoplasm [Not Recovered/Not Resolved]
  - Oral candidiasis [Not Recovered/Not Resolved]
  - Joint swelling [Not Recovered/Not Resolved]
  - Peripheral swelling [Not Recovered/Not Resolved]
  - Bone swelling [Not Recovered/Not Resolved]
  - Candida infection [Not Recovered/Not Resolved]
  - Arthralgia [Not Recovered/Not Resolved]
  - Loss of personal independence in daily activities [Not Recovered/Not Resolved]
  - Pain [Not Recovered/Not Resolved]
  - Treatment failure [Not Recovered/Not Resolved]
  - Off label use [Not Recovered/Not Resolved]
  - Prescribed overdose [Not Recovered/Not Resolved]
  - Stomatitis [Not Recovered/Not Resolved]
  - Pyrexia [Not Recovered/Not Resolved]
  - Headache [Not Recovered/Not Resolved]
